FAERS Safety Report 6380116-3 (Version None)
Quarter: 2009Q3

REPORT INFORMATION
  Report Type: 
  Country: None (occurrence: None)
  Receive Date: 20090929
  Receipt Date: 20090915
  Transmission Date: 20100115
  Serious: Yes (Other)
  Sender: FDA-Public Use
  Company Number: IT-RANBAXY-2009RR-28160

PATIENT
  Age: 71 Year
  Sex: Female

DRUGS (4)
  1. SERTRALINE HCL [Suspect]
     Indication: DEPRESSION
     Dosage: 50 MG, UNK
  2. SERTRALINE HCL [Suspect]
     Dosage: 50 MG, UNK
     Dates: start: 20080123
  3. AMISULPRIDE [Concomitant]
  4. DIAZEPAM [Concomitant]

REACTIONS (1)
  - RHABDOMYOLYSIS [None]
